FAERS Safety Report 6260707-0 (Version None)
Quarter: 2009Q3

REPORT INFORMATION
  Report Type: 
  Country: None (occurrence: None)
  Receive Date: 20090706
  Receipt Date: 20090619
  Transmission Date: 20100115
  Serious: Yes (Hospitalization)
  Sender: FDA-Public Use
  Company Number: 2008AL010503

PATIENT
  Age: 73 Year
  Sex: Male
  Weight: 103.8737 kg

DRUGS (11)
  1. DIGOXIN [Suspect]
     Indication: CARDIAC FAILURE CONGESTIVE
     Dosage: 0.25MG, DAILY, PO
     Route: 048
     Dates: start: 20060101, end: 20071025
  2. AMIODARONE HCL [Concomitant]
  3. LIPITOR [Concomitant]
  4. COREG [Concomitant]
  5. AVELOX [Concomitant]
  6. IMDUR [Concomitant]
  7. NIACIN [Concomitant]
  8. AVODART [Concomitant]
  9. LASIX [Concomitant]
  10. SPIRONOLACTONE [Concomitant]
  11. FOLIC ACID [Concomitant]

REACTIONS (20)
  - ANXIETY [None]
  - ATRIAL FIBRILLATION [None]
  - CARDIAC FAILURE CONGESTIVE [None]
  - CARDIOMYOPATHY [None]
  - CHEST PAIN [None]
  - COUGH [None]
  - DYSLIPIDAEMIA [None]
  - ECONOMIC PROBLEM [None]
  - EMOTIONAL DISTRESS [None]
  - FAMILY STRESS [None]
  - HYPERTENSION [None]
  - INJURY [None]
  - OROPHARYNGEAL PAIN [None]
  - PAIN [None]
  - PARTNER STRESS [None]
  - RENAL FAILURE ACUTE [None]
  - RHINORRHOEA [None]
  - THERAPEUTIC AGENT TOXICITY [None]
  - VISION BLURRED [None]
  - VISUAL IMPAIRMENT [None]
